FAERS Safety Report 8985393 (Version 1)
Quarter: 2012Q4

REPORT INFORMATION
  Report Type: 
  Country: RO (occurrence: GB)
  Receive Date: 20121226
  Receipt Date: 20121226
  Transmission Date: 20130627
  Serious: Yes (Other)
  Sender: FDA-Public Use
  Company Number: RO-ARROW-2012-22238

PATIENT
  Age: 23 Year
  Sex: Female

DRUGS (1)
  1. ZOLPIDEM TARTRATE (UNKNOWN) [Suspect]
     Indication: PRODUCT USED FOR UNKNOWN INDICATION
     Dosage: UNK, unknown
     Route: 065

REACTIONS (1)
  - Therapeutic response unexpected [Unknown]
